FAERS Safety Report 5733044-8 (Version None)
Quarter: 2008Q2

REPORT INFORMATION
  Report Type: 
  Country: None (occurrence: None)
  Receive Date: 20080509
  Receipt Date: 20080430
  Transmission Date: 20081010
  Serious: Yes (Death, Life-Threatening)
  Sender: FDA-Public Use
  Company Number: KR-BAYER-200815966GPV

PATIENT
  Age: 59 Year
  Sex: Female
  Weight: 59 kg

DRUGS (15)
  1. NEXAVAR [Suspect]
     Indication: GASTRIC CANCER
     Dosage: TOTAL DAILY DOSE: 800 MG  UNIT DOSE: 200 MG
     Route: 048
     Dates: start: 20080221, end: 20080331
  2. XELODA [Suspect]
     Indication: GASTRIC CANCER
     Dosage: TOTAL DAILY DOSE: 3300 MG
     Route: 048
     Dates: start: 20080221, end: 20080306
  3. CISPLATIN (XP) [Suspect]
     Indication: GASTRIC CANCER
     Route: 042
     Dates: start: 20080221, end: 20080221
  4. CISPLATIN (XP) [Suspect]
     Route: 042
     Dates: start: 20080314, end: 20080314
  5. POTASSIUM CHLORIDE [Concomitant]
     Indication: PROPHYLAXIS
     Route: 042
     Dates: start: 20080221, end: 20080314
  6. MAGNESIUM SULFATE [Concomitant]
     Indication: PROPHYLAXIS
     Route: 042
     Dates: start: 20080221, end: 20080314
  7. BETAMETHASONE [Concomitant]
     Indication: ANTIEMETIC SUPPORTIVE CARE
     Route: 042
     Dates: start: 20080221, end: 20080314
  8. ONSERAN [Concomitant]
     Indication: ANTIEMETIC SUPPORTIVE CARE
     Route: 042
     Dates: start: 20080322, end: 20080324
  9. ONSERAN [Concomitant]
     Route: 042
     Dates: start: 20080221, end: 20080314
  10. ULTRACET [Concomitant]
     Indication: ANALGESIA
     Route: 048
     Dates: start: 20080314, end: 20080331
  11. DEXAMETHASONE [Concomitant]
     Indication: ANTIEMETIC SUPPORTIVE CARE
     Route: 048
     Dates: start: 20080314, end: 20080324
  12. ZANTAC [Concomitant]
     Indication: ANTACID THERAPY
     Route: 048
     Dates: start: 20080221, end: 20080324
  13. FEROBA [Concomitant]
     Indication: ANAEMIA PROPHYLAXIS
     Route: 048
     Dates: start: 20080221, end: 20080331
  14. LASIX [Concomitant]
     Indication: DIURETIC THERAPY
     Route: 042
     Dates: start: 20080314, end: 20080314
  15. PHAZYME [Concomitant]
     Indication: DYSPEPSIA
     Route: 048
     Dates: start: 20080221, end: 20080222

REACTIONS (3)
  - GASTRIC PERFORATION [None]
  - NEUTROPENIA [None]
  - SEPTIC SHOCK [None]
